FAERS Safety Report 16421928 (Version 1)
Quarter: 2019Q2

REPORT INFORMATION
  Report Type: Spontaneous
  Country: NL (occurrence: NL)
  Receive Date: 20190612
  Receipt Date: 20190612
  Transmission Date: 20190711
  Serious: Yes (Disabling, Other)
  Sender: FDA-Public Use
  Company Number: NL-PURDUE PHARMA-GBR-2019-0067199

PATIENT
  Sex: Male

DRUGS (1)
  1. MORPHINE SULFATE. [Suspect]
     Active Substance: MORPHINE SULFATE
     Indication: PAIN
     Dosage: 5 TIMES DURING THE NIGHT
     Route: 065

REACTIONS (4)
  - Gait disturbance [Unknown]
  - Compartment syndrome [Unknown]
  - Nerve injury [Unknown]
  - Haemorrhage [Unknown]
